FAERS Safety Report 18760422 (Version 13)
Quarter: 2023Q2

REPORT INFORMATION
  Report Type: Spontaneous
  Country: US (occurrence: US)
  Receive Date: 20210119
  Receipt Date: 20230613
  Transmission Date: 20230722
  Serious: No
  Sender: FDA-Public Use
  Company Number: US-PFIZER INC-2020296722

PATIENT
  Age: 68 Year
  Sex: Female
  Weight: 68.04 kg

DRUGS (9)
  1. RETACRIT [Suspect]
     Active Substance: EPOETIN ALFA-EPBX
     Indication: Anaemia
     Dosage: 10000 IU, WEEKLY
     Route: 058
  2. RETACRIT [Suspect]
     Active Substance: EPOETIN ALFA-EPBX
     Indication: Protein total abnormal
     Dosage: 10000 IU
  3. RETACRIT [Suspect]
     Active Substance: EPOETIN ALFA-EPBX
     Indication: Haemoglobin decreased
     Dosage: 20000 IU
  4. RETACRIT [Suspect]
     Active Substance: EPOETIN ALFA-EPBX
     Dosage: 10000 IU
  5. RETACRIT [Suspect]
     Active Substance: EPOETIN ALFA-EPBX
     Dosage: 40000 MG, WEEKLY
  6. RETACRIT [Suspect]
     Active Substance: EPOETIN ALFA-EPBX
     Dosage: 40000 IU/ML (40,000 U/ML Q 2 WEEKS)
  7. RETACRIT [Suspect]
     Active Substance: EPOETIN ALFA-EPBX
     Dosage: 40000 IU, WEEKLY
  8. RETACRIT [Suspect]
     Active Substance: EPOETIN ALFA-EPBX
     Dosage: 1 ML, WEEKLY (INJECT 1 ML SUBCUTANEOUSLY WEEKLY FOR HGB {11)
     Route: 058
  9. LEVOTHYROXINE [Concomitant]
     Active Substance: LEVOTHYROXINE
     Indication: Thyroid disorder
     Dosage: 25 MG, 1X/DAY (25MG ONCE A DAY BY MOUTH ON AN EMPTY STOMACH)
     Route: 048
     Dates: start: 20230117

REACTIONS (7)
  - Fatigue [Unknown]
  - Full blood count decreased [Unknown]
  - Nausea [Unknown]
  - Malaise [Unknown]
  - Product dose omission issue [Unknown]
  - Wrong strength [Unknown]
  - Off label use [Unknown]

NARRATIVE: CASE EVENT DATE: 20230117
